FAERS Safety Report 21294911 (Version 2)
Quarter: 2024Q1

REPORT INFORMATION
  Report Type: Spontaneous
  Country: US (occurrence: US)
  Receive Date: 20220905
  Receipt Date: 20240103
  Transmission Date: 20240409
  Serious: No
  Sender: FDA-Public Use
  Company Number: US-BIOGEN-2022BI01138760

PATIENT
  Age: 64 Year
  Sex: Female

DRUGS (12)
  1. TECFIDERA [Suspect]
     Active Substance: DIMETHYL FUMARATE
     Indication: Multiple sclerosis
     Route: 050
     Dates: start: 2021
  2. TRAZODONE [Concomitant]
     Active Substance: TRAZODONE HYDROCHLORIDE
     Route: 050
  3. SUCRALFATE [Concomitant]
     Active Substance: SUCRALFATE
     Route: 050
  4. SIMVASTATIN [Concomitant]
     Active Substance: SIMVASTATIN
     Route: 050
  5. PAROXETINE [Concomitant]
     Active Substance: PAROXETINE
     Route: 050
  6. PANTOPRAZOLE [Concomitant]
     Active Substance: PANTOPRAZOLE
     Route: 050
  7. MONTELUKAST SODIUM [Concomitant]
     Active Substance: MONTELUKAST SODIUM
     Route: 050
  8. flucasone [Concomitant]
     Route: 050
  9. ADDERALL [Concomitant]
     Active Substance: AMPHETAMINE ASPARTATE\AMPHETAMINE SULFATE\DEXTROAMPHETAMINE SACCHARATE\DEXTROAMPHETAMINE SULFATE
     Route: 050
  10. DULOXETINE [Concomitant]
     Active Substance: DULOXETINE
     Route: 050
  11. LYRICA [Concomitant]
     Active Substance: PREGABALIN
     Route: 050
  12. PROVIGIL [Concomitant]
     Active Substance: MODAFINIL
     Route: 050

REACTIONS (6)
  - Dyskinesia [Unknown]
  - Incontinence [Unknown]
  - Gait disturbance [Unknown]
  - Gastrointestinal disorder [Unknown]
  - Drug intolerance [Unknown]
  - Fall [Recovered/Resolved]

NARRATIVE: CASE EVENT DATE: 20220501
